FAERS Safety Report 9874162 (Version 2)
Quarter: 2014Q1

REPORT INFORMATION
  Report Type: Other
  Country: US (occurrence: US)
  Receive Date: 20140206
  Receipt Date: 20140206
  Transmission Date: 20141002
  Serious: No
  Sender: FDA-Public Use
  Company Number: US-ACORDA-ACO_34294_2013

PATIENT
  Sex: Female

DRUGS (3)
  1. AMPYRA [Suspect]
     Indication: MULTIPLE SCLEROSIS
     Dosage: 10 MG, BID
     Dates: start: 20120425, end: 2013
  2. AMPYRA [Suspect]
     Indication: ATAXIA
  3. TYSABRI [Concomitant]
     Indication: MULTIPLE SCLEROSIS
     Dosage: UNK UNK, MONTHLY

REACTIONS (3)
  - Sensation of heaviness [Unknown]
  - Gait disturbance [Unknown]
  - Fatigue [Unknown]
